FAERS Safety Report 13349379 (Version 1)
Quarter: 2017Q1

REPORT INFORMATION
  Report Type: Spontaneous
  Country: US (occurrence: US)
  Receive Date: 20170317
  Receipt Date: 20170317
  Transmission Date: 20170428
  Serious: Yes (Other)
  Sender: FDA-Public Use
  Company Number: None

PATIENT
  Age: 17 Year
  Sex: Male
  Weight: 62.1 kg

DRUGS (4)
  1. LEVOFLOXACIN. [Suspect]
     Active Substance: LEVOFLOXACIN
     Indication: HYDROCELE
     Dosage: ?          QUANTITY:1 CAPSULE(S);?
     Route: 048
     Dates: start: 20170310, end: 20170312
  2. PROTEIN SHAKES [Concomitant]
  3. ADVIL [Concomitant]
     Active Substance: IBUPROFEN
  4. LEVOFLOXACIN. [Suspect]
     Active Substance: LEVOFLOXACIN
     Indication: BACTERIAL INFECTION
     Dosage: ?          QUANTITY:1 CAPSULE(S);?
     Route: 048
     Dates: start: 20170310, end: 20170312

REACTIONS (4)
  - Dizziness [None]
  - Nausea [None]
  - Limb discomfort [None]
  - Chest pain [None]

NARRATIVE: CASE EVENT DATE: 20170313
